FAERS Safety Report 7233119-0 (Version None)
Quarter: 2011Q1

REPORT INFORMATION
  Report Type: 
  Country: None (occurrence: None)
  Receive Date: 20110119
  Receipt Date: 20110118
  Transmission Date: 20110831
  Serious: Yes (Life-Threatening, Disabling, Other)
  Sender: FDA-Public Use
  Company Number: A0906989A

PATIENT
  Age: 41 Year
  Sex: Female

DRUGS (10)
  1. FIBER [Concomitant]
     Indication: SUPPLEMENTATION THERAPY
  2. ALLI [Suspect]
     Indication: WEIGHT LOSS DIET
     Route: 048
     Dates: start: 20091001
  3. ALANINE [Concomitant]
  4. REMERON [Concomitant]
  5. ORPHENADRINE CITRATE [Concomitant]
  6. MULTIVITAMIN [Concomitant]
  7. PERI-COLACE [Concomitant]
  8. CELEXA [Concomitant]
  9. KLONOPIN [Concomitant]
  10. CALCIUM CITRATE [Concomitant]

REACTIONS (1)
  - DRUG DEPENDENCE [None]
